FAERS Safety Report 11294707 (Version 1)
Quarter: 2015Q3

REPORT INFORMATION
  Report Type: Spontaneous
  Country: US (occurrence: None)
  Receive Date: 20150722
  Receipt Date: 20150722
  Transmission Date: 20151125
  Serious: Yes (Life-Threatening, Hospitalization)
  Sender: FDA-Public Use
  Company Number: None

PATIENT
  Age: 67 Year
  Sex: Male
  Weight: 84.37 kg

DRUGS (6)
  1. BICALUTAMIDE. [Suspect]
     Active Substance: BICALUTAMIDE
     Indication: DYSURIA
     Dosage: 90 ONCE DAILY MOUTH
     Route: 048
     Dates: start: 201502, end: 20150510
  2. TAMOLUSIN [Concomitant]
  3. CLOPIDOGREL [Concomitant]
     Active Substance: CLOPIDOGREL BISULFATE
  4. VITAMIN D [Concomitant]
     Active Substance: CHOLECALCIFEROL
  5. BICALUTAMIDE. [Suspect]
     Active Substance: BICALUTAMIDE
     Indication: PROSTATE CANCER
     Dosage: 90 ONCE DAILY MOUTH
     Route: 048
     Dates: start: 201502, end: 20150510
  6. METOPROLOL [Concomitant]
     Active Substance: METOPROLOL

REACTIONS (5)
  - Abdominal pain [None]
  - Myocardial infarction [None]
  - Breast enlargement [None]
  - Nipple inflammation [None]
  - Memory impairment [None]

NARRATIVE: CASE EVENT DATE: 20150705
